FAERS Safety Report 7064677-7 (Version None)
Quarter: 2010Q4

REPORT INFORMATION
  Report Type: 
  Country: None (occurrence: None)
  Receive Date: 20101027
  Receipt Date: 20101018
  Transmission Date: 20110411
  Serious: Yes (Hospitalization)
  Sender: FDA-Public Use
  Company Number: DE-JNJFOC-20100906018

PATIENT
  Sex: Male
  Weight: 32.6 kg

DRUGS (5)
  1. INFLIXIMAB, RECOMBINANT [Suspect]
     Indication: CROHN'S DISEASE
     Route: 042
  2. AMINOSALICYLIC ACID [Concomitant]
  3. SELENASE [Concomitant]
  4. VITAMIN A [Concomitant]
  5. CALCILAC [Concomitant]

REACTIONS (1)
  - GASTROINTESTINAL NEOPLASM [None]
